FAERS Safety Report 5102189-8 (Version None)
Quarter: 2006Q3

REPORT INFORMATION
  Report Type: 
  Country: None (occurrence: None)
  Receive Date: 20060912
  Receipt Date: 20060818
  Transmission Date: 20061208
  Serious: Yes (Other)
  Sender: FDA-Public Use
  Company Number: US-BRISTOL-MYERS SQUIBB COMPANY-13482526

PATIENT
  Age: 70 Year
  Sex: Male

DRUGS (19)
  1. CARBOPLATIN [Suspect]
     Indication: NON-SMALL CELL LUNG CANCER
     Route: 042
     Dates: start: 20060710, end: 20060710
  2. PACLITAXEL [Suspect]
     Indication: NON-SMALL CELL LUNG CANCER
     Route: 042
     Dates: start: 20060710, end: 20060710
  3. BLINDED: SORAFENIB [Suspect]
     Indication: NON-SMALL CELL LUNG CANCER
     Route: 048
     Dates: start: 20060710, end: 20060725
  4. PREVACID [Concomitant]
     Indication: GASTROOESOPHAGEAL REFLUX DISEASE
     Dates: start: 20060301
  5. VICODIN [Concomitant]
     Indication: FLANK PAIN
     Dates: start: 20060425, end: 20060610
  6. ATENOLOL [Concomitant]
     Indication: HYPERTENSION
     Dates: start: 20020101
  7. ASPIRIN [Concomitant]
     Indication: PROPHYLAXIS
     Dates: start: 20020101
  8. ATIVAN [Concomitant]
     Indication: INSOMNIA
     Dates: start: 20060623
  9. IMODIUM [Concomitant]
     Indication: DIARRHOEA
     Dates: start: 20060624, end: 20060710
  10. SUCRALFATE [Concomitant]
     Indication: GASTROOESOPHAGEAL REFLUX DISEASE
     Dates: start: 20060101
  11. ZOFRAN [Concomitant]
     Indication: VOMITING
     Dates: start: 20060622, end: 20060710
  12. REGLAN [Concomitant]
     Indication: HICCUPS
     Dates: start: 20060620, end: 20060710
  13. THORAZINE [Concomitant]
     Indication: HICCUPS
     Dates: start: 20060620, end: 20060710
  14. DIFLUCAN [Concomitant]
     Indication: ORAL CANDIDIASIS
     Dates: start: 20060626, end: 20060710
  15. TYLENOL [Concomitant]
     Indication: PYREXIA
     Dates: start: 20060717, end: 20060717
  16. CEPACOL [Concomitant]
     Indication: COUGH
     Dates: start: 20060717
  17. LUNESTA [Concomitant]
     Indication: INSOMNIA
     Dates: start: 20060717, end: 20060812
  18. ZANTAC [Concomitant]
     Indication: GASTROOESOPHAGEAL REFLUX DISEASE
     Dates: start: 20060623, end: 20060623
  19. DECADRON [Concomitant]
     Indication: ANAPHYLAXIS PROPHYLAXIS
     Route: 048
     Dates: start: 20060618, end: 20060711

REACTIONS (1)
  - DEEP VEIN THROMBOSIS [None]
